FAERS Safety Report 8475783-4 (Version None)
Quarter: 2012Q2

REPORT INFORMATION
  Report Type: 
  Country: None (occurrence: None)
  Receive Date: 20120628
  Receipt Date: 20120621
  Transmission Date: 20120825
  Serious: Yes (Life-Threatening)
  Sender: FDA-Public Use
  Company Number: US-B.I. PHARMACEUTICALS,INC./RIDGEFIELD-2012-RU-00221BP

PATIENT
  Sex: Male
  Weight: 73.9 kg

DRUGS (5)
  1. TRIAL PROCEDURE [Suspect]
     Indication: CHRONIC OBSTRUCTIVE PULMONARY DISEASE
  2. BI 1744+TIOTROPIUM [Suspect]
     Indication: CHRONIC OBSTRUCTIVE PULMONARY DISEASE
     Dates: start: 20120327, end: 20120605
  3. SOMINEX [Suspect]
     Indication: INSOMNIA
     Dates: start: 20120603
  4. PROAIR HFA [Concomitant]
     Indication: CHRONIC OBSTRUCTIVE PULMONARY DISEASE
     Dates: end: 20120308
  5. ZOLOFT [Suspect]
     Indication: DEPRESSION

REACTIONS (1)
  - SUICIDAL IDEATION [None]
